FAERS Safety Report 8720809 (Version 2)
Quarter: 2015Q2

REPORT INFORMATION
  Report Type: Report from Study
  Country: US (occurrence: US)
  Receive Date: 20120813
  Receipt Date: 20150408
  Transmission Date: 20150821
  Serious: Yes (Other)
  Sender: FDA-Public Use
  Company Number: US-ROCHE-1100440

PATIENT
  Sex: Male

DRUGS (18)
  1. NTG [Concomitant]
     Active Substance: NITROGLYCERIN
     Route: 060
  2. MORPHINE SULFATE. [Concomitant]
     Active Substance: MORPHINE SULFATE
     Route: 042
  3. LOPRESSOR [Concomitant]
     Active Substance: METOPROLOL TARTRATE
     Route: 065
  4. LASIX [Concomitant]
     Active Substance: FUROSEMIDE
     Route: 065
  5. ACTIVASE [Suspect]
     Active Substance: ALTEPLASE
     Indication: ACUTE MYOCARDIAL INFARCTION
     Route: 040
  6. NTG [Concomitant]
     Active Substance: NITROGLYCERIN
     Route: 060
  7. HEPARIN [Concomitant]
     Active Substance: HEPARIN SODIUM
     Dosage: 5000 UNITS
     Route: 042
  8. ACTIVASE [Suspect]
     Active Substance: ALTEPLASE
     Dosage: 50 CC
     Route: 040
  9. ACTIVASE [Suspect]
     Active Substance: ALTEPLASE
     Route: 040
  10. LIDOCAINE. [Concomitant]
     Active Substance: LIDOCAINE
     Route: 042
  11. LIDOCAINE. [Concomitant]
     Active Substance: LIDOCAINE
     Route: 042
  12. MORPHINE SULFATE. [Concomitant]
     Active Substance: MORPHINE SULFATE
     Dosage: AS NEEDED.
     Route: 042
  13. ACTIVASE [Suspect]
     Active Substance: ALTEPLASE
     Route: 040
  14. MOTRIN [Concomitant]
     Active Substance: IBUPROFEN
     Route: 065
  15. LIDOCAINE. [Concomitant]
     Active Substance: LIDOCAINE
     Route: 042
  16. LOPRESSOR [Concomitant]
     Active Substance: METOPROLOL TARTRATE
     Route: 065
  17. TENEX [Concomitant]
     Active Substance: GUANFACINE HYDROCHLORIDE
     Route: 065
  18. NITRO PATCH [Concomitant]
     Active Substance: NITROGLYCERIN
     Route: 042

REACTIONS (1)
  - Pain in extremity [Recovering/Resolving]
